FAERS Safety Report 4284562-3 (Version None)
Quarter: 2004Q1

REPORT INFORMATION
  Report Type: 
  Country: None (occurrence: None)
  Receive Date: 20040130
  Receipt Date: 20040114
  Transmission Date: 20041129
  Serious: Yes (Hospitalization, Other)
  Sender: FDA-Public Use
  Company Number: HQWYE197725JUL03

PATIENT
  Sex: Male

DRUGS (1)
  1. BISOPROLOL FUMARATE [Suspect]
     Indication: ESSENTIAL HYPERTENSION
     Dosage: 5 MG; TRANSPLACENTAL
     Route: 064

REACTIONS (10)
  - CAESAREAN SECTION [None]
  - CARDIO-RESPIRATORY DISTRESS [None]
  - FOETAL DISTRESS SYNDROME [None]
  - FOETAL HEART RATE DECREASED [None]
  - GENERALISED OEDEMA [None]
  - HYPOGLYCAEMIA NEONATAL [None]
  - MATERNAL DRUGS AFFECTING FOETUS [None]
  - NEONATAL DISORDER [None]
  - NEONATAL RESPIRATORY DISTRESS SYNDROME [None]
  - PULMONARY OEDEMA NEONATAL [None]
